FAERS Safety Report 9396421 (Version 1)
Quarter: 2013Q3

REPORT INFORMATION
  Report Type: Spontaneous
  Country: US (occurrence: None)
  Receive Date: 20130708
  Receipt Date: 20130708
  Transmission Date: 20140515
  Serious: Yes (Other)
  Sender: FDA-Public Use
  Company Number: SYM-2013-05308

PATIENT
  Age: 76 Year
  Sex: Female

DRUGS (5)
  1. XENAZINE [Suspect]
     Indication: DYSKINESIA
     Dosage: 1 IN 1 D
     Route: 048
     Dates: start: 20130515
  2. XENAZINE [Suspect]
     Indication: DYSTONIA
     Dosage: 1 IN 1 D
     Route: 048
     Dates: start: 20130515
  3. ADVAIR (SERETIDE) (FLUTICASONE PROPIONATE, SALMETEROL XINAFOATE) [Concomitant]
  4. LEVOTHYROXINE [Concomitant]
  5. SIMVASTATIN [Concomitant]

REACTIONS (3)
  - Suicidal ideation [None]
  - Depression [None]
  - Middle insomnia [None]
